FAERS Safety Report 5798227-X (Version None)
Quarter: 2008Q3

REPORT INFORMATION
  Report Type: 
  Country: None (occurrence: None)
  Receive Date: 20080702
  Receipt Date: 20080630
  Transmission Date: 20090109
  Serious: Yes (Hospitalization)
  Sender: FDA-Public Use
  Company Number: D0057598A

PATIENT

DRUGS (1)
  1. ARIXTRA [Suspect]
     Indication: ARTHROSCOPY
     Route: 065

REACTIONS (2)
  - COMPARTMENT SYNDROME [None]
  - HAEMATOMA [None]
